FAERS Safety Report 24030237 (Version 1)
Quarter: 2024Q2

REPORT INFORMATION
  Report Type: Report from Study
  Country: US (occurrence: US)
  Receive Date: 20240628
  Receipt Date: 20240628
  Transmission Date: 20240716
  Serious: Yes (Other)
  Sender: FDA-Public Use
  Company Number: US-JNJFOC-20230368063

PATIENT
  Age: 67 Year
  Sex: Female

DRUGS (2)
  1. REMICADE [Suspect]
     Active Substance: INFLIXIMAB
     Indication: Psoriasis
     Route: 041
     Dates: start: 20150922, end: 20151230
  2. STELARA [Suspect]
     Active Substance: USTEKINUMAB
     Indication: Psoriasis
     Route: 058
     Dates: start: 20160330, end: 20161026

REACTIONS (2)
  - Erysipelas [Unknown]
  - Actinic keratosis [Unknown]

NARRATIVE: CASE EVENT DATE: 20190211
